FAERS Safety Report 7691824-6 (Version None)
Quarter: 2011Q3

REPORT INFORMATION
  Report Type: 
  Country: None (occurrence: None)
  Receive Date: 20110818
  Receipt Date: 20110816
  Transmission Date: 20111222
  Serious: Yes (Hospitalization, Other)
  Sender: FDA-Public Use
  Company Number: US-PFIZER INC-2011047521

PATIENT
  Sex: Female
  Weight: 68.027 kg

DRUGS (5)
  1. CHANTIX [Suspect]
     Indication: SMOKING CESSATION THERAPY
     Dosage: 0.5 MG, 1X/DAY
     Route: 048
     Dates: start: 20110226
  2. CHANTIX [Suspect]
     Dosage: UNK
     Dates: start: 20110101
  3. CHANTIX [Suspect]
     Dosage: UNK
     Route: 048
     Dates: start: 20110201, end: 20110501
  4. CHANTIX [Suspect]
     Dosage: 0.5 MG, 2X/DAY
     Dates: end: 20110301
  5. SEROQUEL [Concomitant]
     Indication: SLEEP DISORDER
     Dosage: 100 MG, DAILY
     Route: 048

REACTIONS (10)
  - IRRITABILITY [None]
  - APPENDICITIS PERFORATED [None]
  - MENTAL DISORDER [None]
  - DEPRESSED MOOD [None]
  - MOOD ALTERED [None]
  - IMPATIENCE [None]
  - ANXIETY [None]
  - STRESS [None]
  - ABSCESS [None]
  - APATHY [None]
